FAERS Safety Report 4631940-6 (Version None)
Quarter: 2005Q2

REPORT INFORMATION
  Report Type: 
  Country: None (occurrence: None)
  Receive Date: 20050411
  Receipt Date: 20050404
  Transmission Date: 20051028
  Serious: Yes (Death)
  Sender: FDA-Public Use
  Company Number: PHRM2005FR01227

PATIENT
  Age: 21 Year
  Sex: Male

DRUGS (2)
  1. LEPONEX [Suspect]
     Indication: PSYCHOTIC DISORDER
     Dosage: 400 MG/DAY
     Route: 048
  2. THERALENE [Concomitant]
     Route: 048

REACTIONS (3)
  - ANTIPSYCHOTIC DRUG LEVEL ABOVE THERAPEUTIC [None]
  - PNEUMONIA ASPIRATION [None]
  - VOMITING [None]
